FAERS Safety Report 8856849 (Version 1)
Quarter: 2012Q4

REPORT INFORMATION
  Report Type: Spontaneous
  Country: US (occurrence: None)
  Receive Date: 20121019
  Receipt Date: 20121019
  Transmission Date: 20130627
  Serious: Yes (Life-Threatening)
  Sender: FDA-Public Use
  Company Number: DSA_60014_2012

PATIENT
  Age: 34 Year
  Sex: Female

DRUGS (4)
  1. LORAZEPAM [Suspect]
     Indication: PRODUCT USED FOR UNKNOWN INDICATION
     Dosage: 1 mg #120, once
  2. ZOLPIDEM [Suspect]
     Indication: PRODUCT USED FOR UNKNOWN INDICATION
     Dosage: 10 mg #60, once
  3. OXYCODONE [Suspect]
     Indication: PRODUCT USED FOR UNKNOWN INDICATION
     Dosage: 15 mg # 90, once
  4. FENTANYL [Suspect]
     Indication: PRODUCT USED FOR UNKNOWN INDICATION
     Dosage: 11, once

REACTIONS (10)
  - Unresponsive to stimuli [None]
  - Blood pressure increased [None]
  - Heart rate increased [None]
  - Body temperature increased [None]
  - Oxygen saturation decreased [None]
  - Drug ineffective [None]
  - Pupillary reflex impaired [None]
  - Drug abuse [None]
  - Stress cardiomyopathy [None]
  - Overdose [None]
